FAERS Safety Report 25643148 (Version 2)
Quarter: 2025Q4

REPORT INFORMATION
  Report Type: Spontaneous
  Country: US (occurrence: US)
  Receive Date: 20250805
  Receipt Date: 20251010
  Transmission Date: 20260119
  Serious: Yes (Other)
  Sender: GLAXOSMITHKLINE
  Company Number: US-GSK-US2025AMR097982

PATIENT
  Sex: Female

DRUGS (31)
  1. FLUTICASONE PROPIONATE [Suspect]
     Active Substance: FLUTICASONE PROPIONATE
     Indication: Product used for unknown indication
     Dosage: UNK
  2. CALAMINE [Suspect]
     Active Substance: CALAMINE\FERRIC OXIDE RED\ZINC OXIDE
     Indication: Pruritus
     Dosage: UNK,LOTION
  3. CETIRIZINE HCL [Suspect]
     Active Substance: CETIRIZINE HYDROCHLORIDE
     Indication: Hypersensitivity
     Dosage: 10 MG
  4. LIDOCAINE [Suspect]
     Active Substance: LIDOCAINE
     Indication: Pain
     Dosage: UNK, 5 % PATCH
  5. FAMOTIDINE [Suspect]
     Active Substance: FAMOTIDINE
     Indication: Product used for unknown indication
     Dosage: 20 MG
  6. PHENYLEPHRINE HYDROCHLORIDE [Suspect]
     Active Substance: PHENYLEPHRINE HYDROCHLORIDE
     Indication: Haemorrhoids
     Dosage: UNK,0.25 % RTL SUPP
  7. SENNOSIDES [Suspect]
     Active Substance: SENNOSIDES
     Indication: Constipation
     Dosage: 8.6 MG
  8. AMMONIUM LACTATE [Suspect]
     Active Substance: AMMONIUM LACTATE
     Indication: Dry skin
     Dosage: UNK, BID,,LOTION 12%
  9. SALICYLIC ACID [Suspect]
     Active Substance: SALICYLIC ACID
     Indication: Product used for unknown indication
     Dosage: 40 %
  10. FERROUS GLUCONATE [Suspect]
     Active Substance: FERROUS GLUCONATE
     Indication: Blood iron
     Dosage: 324 MG
  11. FERROUS GLUCONATE [Suspect]
     Active Substance: FERROUS GLUCONATE
     Dosage: 1 DF, QD
  12. KETOCONAZOLE [Suspect]
     Active Substance: KETOCONAZOLE
     Indication: Product used for unknown indication
     Dosage: 2 %
  13. BISACODYL [Suspect]
     Active Substance: BISACODYL
     Indication: Product used for unknown indication
     Dosage: 5 MG
  14. MAGNESIUM OXIDE [Suspect]
     Active Substance: MAGNESIUM OXIDE
     Indication: Mineral supplementation
     Dosage: 420 MG, QD
  15. UREA [Suspect]
     Active Substance: UREA
     Indication: Product used for unknown indication
     Dosage: UNK
  16. TRIAMCINOLONE ACETONIDE [Suspect]
     Active Substance: TRIAMCINOLONE ACETONIDE
     Indication: Product used for unknown indication
     Dosage: 0.1 %
  17. PANTOPRAZOLE [Suspect]
     Active Substance: PANTOPRAZOLE
     Indication: Product used for unknown indication
     Dosage: 20 MG EC
  18. OXYCODONE HYDROCHLORIDE [Suspect]
     Active Substance: OXYCODONE HYDROCHLORIDE
     Indication: Product used for unknown indication
     Dosage: 5 MG,CAP/TAB
  19. CALCIUM [Suspect]
     Active Substance: CALCIUM
     Indication: Product used for unknown indication
     Dosage: 500 MG
  20. MENTHOL [Suspect]
     Active Substance: MENTHOL
     Indication: Product used for unknown indication
     Dosage: UNK
  21. AMLODIPINE BESYLATE [Suspect]
     Active Substance: AMLODIPINE BESYLATE
     Indication: Product used for unknown indication
     Dosage: 5 MG
  22. DICLOFENAC [Suspect]
     Active Substance: DICLOFENAC
     Indication: Product used for unknown indication
     Dosage: 1 % (TOP GEL)
  23. VITAMIN E [Suspect]
     Active Substance: .ALPHA.-TOCOPHEROL
     Indication: Product used for unknown indication
     Dosage: 180 MG
  24. AZITHROMYCIN [Suspect]
     Active Substance: AZITHROMYCIN
     Indication: Product used for unknown indication
     Dosage: 250 MG
  25. BENZOYL PEROXIDE [Suspect]
     Active Substance: BENZOYL PEROXIDE
     Indication: Product used for unknown indication
     Dosage: UNK, 5 % WATER BASED
  26. TRETINOIN [Suspect]
     Active Substance: TRETINOIN
     Indication: Product used for unknown indication
     Dosage: UNK,0.025 %
  27. ACETAMINOPHEN [Suspect]
     Active Substance: ACETAMINOPHEN
     Indication: Product used for unknown indication
     Dosage: UNK
  28. EPINEPHRINE [Suspect]
     Active Substance: EPINEPHRINE
     Indication: Hypersensitivity
     Dosage: UNK
  29. MELOXICAM [Suspect]
     Active Substance: MELOXICAM
     Indication: Pain
     Dosage: 15 MG
  30. MELOXICAM [Suspect]
     Active Substance: MELOXICAM
     Indication: Inflammation
  31. LEVOFLOXACIN [Suspect]
     Active Substance: LEVOFLOXACIN
     Indication: Product used for unknown indication
     Dosage: 500 MG

REACTIONS (53)
  - Surgery [Unknown]
  - Angioedema [Unknown]
  - Bipolar disorder [Unknown]
  - Type 2 diabetes mellitus [Unknown]
  - Schizoaffective disorder [Unknown]
  - Ocular hypertension [Unknown]
  - Hyperlipidaemia [Unknown]
  - Post-traumatic stress disorder [Unknown]
  - Gastrooesophageal reflux disease [Unknown]
  - Amenorrhoea [Unknown]
  - Pain in extremity [Unknown]
  - Pollakiuria [Unknown]
  - Haemorrhoids [Unknown]
  - Nocturia [Unknown]
  - Cystocele [Unknown]
  - Constipation [Unknown]
  - Headache [Unknown]
  - Incontinence [Unknown]
  - Overweight [Unknown]
  - Nasal congestion [Unknown]
  - Hirsutism [Unknown]
  - Rhinitis allergic [Unknown]
  - Chest pain [Unknown]
  - Oropharyngeal pain [Unknown]
  - Ear pain [Unknown]
  - Arthralgia [Unknown]
  - Haemorrhoids [Unknown]
  - Sexually transmitted disease [Unknown]
  - Costochondritis [Unknown]
  - Abdominal pain [Unknown]
  - Rash [Unknown]
  - Dysphagia [Unknown]
  - Muscle spasms [Unknown]
  - Dizziness [Unknown]
  - Hyperacusis [Unknown]
  - Obstructive sleep apnoea syndrome [Unknown]
  - Photophobia [Unknown]
  - Hypertension [Unknown]
  - Iron deficiency anaemia [Unknown]
  - Breast pain [Unknown]
  - Arthralgia [Unknown]
  - Haematuria [Unknown]
  - Gastritis [Unknown]
  - Irritable bowel syndrome [Unknown]
  - Insomnia [Unknown]
  - Rhinitis [Unknown]
  - Urinary incontinence [Unknown]
  - Tinnitus [Unknown]
  - Back pain [Unknown]
  - Fibrocystic breast disease [Unknown]
  - Intervertebral disc disorder [Unknown]
  - Neck pain [Unknown]
  - Glucose-6-phosphate dehydrogenase deficiency [Unknown]
